FAERS Safety Report 15018141 (Version 1)
Quarter: 2018Q2

REPORT INFORMATION
  Report Type: Spontaneous
  Country: US (occurrence: US)
  Receive Date: 20180523
  Receipt Date: 20180523
  Transmission Date: 20180711
  Serious: Yes (Hospitalization)
  Sender: FDA-Public Use
  Company Number: None

PATIENT
  Age: 68 Year
  Sex: Female
  Weight: 78.47 kg

DRUGS (15)
  1. GUAIFENESIN-DEXTROMETHORPHAN [Concomitant]
  2. DAPSONE. [Concomitant]
     Active Substance: DAPSONE
  3. DOCUSATE [Concomitant]
     Active Substance: DOCUSATE
  4. LEVOTHRYROXINE [Concomitant]
  5. PROCHLORPERAZINE. [Concomitant]
     Active Substance: PROCHLORPERAZINE
  6. HYDROCHLOROTHIAZIDE. [Concomitant]
     Active Substance: HYDROCHLOROTHIAZIDE
  7. POLYETHYLENE GLYCOL PACK [Concomitant]
  8. CYTARABINE. [Suspect]
     Active Substance: CYTARABINE
     Dates: end: 20180430
  9. CARVEDILOL. [Concomitant]
     Active Substance: CARVEDILOL
  10. PANTOPRAZOLE [Concomitant]
     Active Substance: PANTOPRAZOLE
  11. ETOPOSIDE (VP-16) [Suspect]
     Active Substance: ETOPOSIDE
     Dates: end: 20180430
  12. ACYCLOVIR. [Concomitant]
     Active Substance: ACYCLOVIR
  13. ONDANSETRON [Concomitant]
     Active Substance: ONDANSETRON
  14. ONCASPAR [Suspect]
     Active Substance: PEGASPARGASE
     Dates: end: 20180430
  15. METHOTREXATE. [Suspect]
     Active Substance: METHOTREXATE
     Dates: end: 20180426

REACTIONS (6)
  - Blood lactic acid increased [None]
  - Nausea [None]
  - Sepsis [None]
  - Vomiting [None]
  - Hypotension [None]
  - Hypophagia [None]

NARRATIVE: CASE EVENT DATE: 20180510
